FAERS Safety Report 6172375-7 (Version None)
Quarter: 2009Q2

REPORT INFORMATION
  Report Type: 
  Country: None (occurrence: None)
  Receive Date: 20090429
  Receipt Date: 20090420
  Transmission Date: 20091009
  Serious: Yes (Other)
  Sender: FDA-Public Use
  Company Number: PHHY2009JP01552

PATIENT
  Sex: Male
  Weight: 54 kg

DRUGS (8)
  1. DIOVAN T30230+TAB+HY [Suspect]
     Indication: HYPERTENSION
     Dosage: 40 MG, QD
     Route: 048
     Dates: start: 20071127, end: 20071224
  2. DIOVAN T30230+TAB+HY [Suspect]
     Dosage: 20 MG DAILY
     Route: 048
     Dates: start: 20071225, end: 20080108
  3. ADALAT CC [Concomitant]
     Indication: HYPERTENSION
     Dosage: 40 MG, UNK
     Route: 048
     Dates: start: 20071127
  4. FLUITRAN [Concomitant]
     Indication: HYPERTENSION
     Dosage: 2 MG, UNK
     Route: 048
     Dates: start: 20071127
  5. FERRUM ^GREEN CROSS^ [Concomitant]
     Dosage: 1 DF, UNK
     Route: 048
     Dates: start: 20071127
  6. ALOSITOL [Concomitant]
     Dosage: 100 MG, UNK
     Route: 048
     Dates: start: 20071127
  7. LIPOVAS ^BANYU^ [Concomitant]
     Dosage: 5 MG, UNK
     Route: 048
     Dates: start: 20071127
  8. OMEPRAL [Concomitant]
     Dosage: 20 MG
     Dates: start: 20071030

REACTIONS (3)
  - CONDITION AGGRAVATED [None]
  - IRON DEFICIENCY ANAEMIA [None]
  - RENAL FAILURE CHRONIC [None]
